FAERS Safety Report 6381899-9 (Version None)
Quarter: 2009Q3

REPORT INFORMATION
  Report Type: 
  Country: None (occurrence: None)
  Receive Date: 20090925
  Receipt Date: 20090915
  Transmission Date: 20100115
  Serious: Yes (Other)
  Sender: FDA-Public Use
  Company Number: 230896J09USA

PATIENT
  Age: 30 Year
  Sex: Female

DRUGS (2)
  1. REBIF [Suspect]
     Indication: MULTIPLE SCLEROSIS
     Dosage: SUBCUTANEOUS
     Route: 058
     Dates: start: 20080505
  2. IRON PILLS (IRON) [Concomitant]

REACTIONS (3)
  - FALL [None]
  - OSTEONECROSIS [None]
  - PULMONARY FUNCTION TEST DECREASED [None]
